FAERS Safety Report 4585575-4 (Version None)
Quarter: 2005Q1

REPORT INFORMATION
  Report Type: 
  Country: None (occurrence: None)
  Receive Date: 20050217
  Receipt Date: 20050211
  Transmission Date: 20050727
  Serious: Yes (Disabling)
  Sender: FDA-Public Use
  Company Number: US-MERCK-0502USA01726

PATIENT
  Age: 71 Year
  Sex: Female

DRUGS (8)
  1. ZOCOR [Suspect]
     Indication: BLOOD CHOLESTEROL INCREASED
     Route: 048
     Dates: start: 20030201
  2. ZOCOR [Suspect]
     Route: 048
     Dates: end: 20041201
  3. SYNTHROID [Concomitant]
     Route: 065
  4. LISINOPRIL [Concomitant]
     Route: 065
  5. PLAVIX [Concomitant]
     Route: 065
  6. NEXIUM [Concomitant]
     Route: 065
  7. VYTORIN [Suspect]
     Route: 065
  8. ZETIA [Suspect]
     Route: 065

REACTIONS (3)
  - BLOOD CREATINE PHOSPHOKINASE INCREASED [None]
  - GLYCOSYLATED HAEMOGLOBIN INCREASED [None]
  - LIMB DISCOMFORT [None]
